FAERS Safety Report 15497894 (Version 2)
Quarter: 2018Q4

REPORT INFORMATION
  Report Type: Spontaneous
  Country: US (occurrence: US)
  Receive Date: 20181015
  Receipt Date: 20181105
  Transmission Date: 20190205
  Serious: No
  Sender: FDA-Public Use
  Company Number: US-PFIZER INC-2018410340

PATIENT
  Age: 28 Year
  Sex: Male
  Weight: 165.5 kg

DRUGS (1)
  1. GENOTROPIN [Suspect]
     Active Substance: SOMATROPIN
     Indication: GROWTH HORMONE DEFICIENCY
     Dosage: 1.2 MG, ONCE DAILY
     Dates: start: 201805

REACTIONS (2)
  - Wrong technique in device usage process [Unknown]
  - Drug ineffective [Unknown]
